FAERS Safety Report 7319695-8 (Version None)
Quarter: 2011Q1

REPORT INFORMATION
  Report Type: 
  Country: None (occurrence: None)
  Receive Date: 20110228
  Receipt Date: 20100804
  Transmission Date: 20110831
  Serious: No
  Sender: FDA-Public Use
  Company Number: A0874012A

PATIENT
  Sex: Female

DRUGS (1)
  1. LAMICTAL [Suspect]
     Route: 048
     Dates: start: 20100726

REACTIONS (4)
  - ABDOMINAL PAIN [None]
  - DIZZINESS [None]
  - BACK PAIN [None]
  - NAUSEA [None]
